FAERS Safety Report 25953826 (Version 4)
Quarter: 2025Q4

REPORT INFORMATION
  Report Type: Spontaneous
  Country: US (occurrence: US)
  Receive Date: 20251023
  Receipt Date: 20251225
  Transmission Date: 20260118
  Serious: No
  Sender: DR REDDYS
  Company Number: US-DRL-USA-USA/2025/10/015470

PATIENT
  Age: 57 Year
  Sex: Male
  Weight: 80.29 kg

DRUGS (1)
  1. ESOMEPRAZOLE MAGNESIUM [Suspect]
     Active Substance: ESOMEPRAZOLE MAGNESIUM
     Indication: Gastrooesophageal reflux disease
     Dosage: 2 TABLETS A DAY /HE WAS TAKING 40 MG. TAKE 2 20 MG TABLETS A DAY
     Route: 048

REACTIONS (4)
  - Dyspepsia [Unknown]
  - Gastrooesophageal reflux disease [Unknown]
  - Product packaging issue [Unknown]
  - Drug ineffective [Unknown]
